FAERS Safety Report 22207899 (Version 4)
Quarter: 2023Q2

REPORT INFORMATION
  Report Type: Spontaneous
  Country: RU (occurrence: RU)
  Receive Date: 20230413
  Receipt Date: 20230425
  Transmission Date: 20230722
  Serious: Yes (Other)
  Sender: FDA-Public Use
  Company Number: RU-SA-2023SA111991

PATIENT
  Age: 16 Year
  Sex: Male
  Weight: 62 kg

DRUGS (7)
  1. DUPILUMAB [Suspect]
     Active Substance: DUPILUMAB
     Indication: Dermatitis atopic
     Dosage: 600 MG, 1X
     Route: 058
     Dates: start: 20220323, end: 20220323
  2. DUPILUMAB [Suspect]
     Active Substance: DUPILUMAB
     Dosage: 300 MG, QOW
     Route: 058
     Dates: start: 202204
  3. EMOLIUM [Concomitant]
     Indication: Dermatitis atopic
     Dosage: 4-5 TIMES A DAY FOR SKIN EROSION, QD
     Route: 061
     Dates: start: 2022
  4. KETOTIFEN [Concomitant]
     Active Substance: KETOTIFEN
     Indication: Dermatitis atopic
     Dosage: 0.5 DF, QD
     Route: 048
     Dates: start: 2022
  5. MOMETASONE FUROATE [Concomitant]
     Active Substance: MOMETASONE FUROATE
     Indication: Dermatitis atopic
     Dosage: LOCALLY ON THE SKIN IN COURSES OF 10 DAYS, QD
     Route: 061
     Dates: start: 2022
  6. PROTOPIC [Concomitant]
     Active Substance: TACROLIMUS
     Indication: Dermatitis atopic
     Dosage: ON FOCI ON THE SKIN, BID
     Route: 061
     Dates: start: 2022
  7. LICOPID [Concomitant]
     Indication: Furuncle
     Dosage: UNK

REACTIONS (6)
  - Neutropenia [Unknown]
  - Irritability [Unknown]
  - Nervousness [Unknown]
  - Tearfulness [Unknown]
  - Social avoidant behaviour [Unknown]
  - Eosinophilia [Unknown]
